FAERS Safety Report 8102632 (Version 6)
Quarter: 2012Q4

REPORT INFORMATION
  Report Type: 
  Country: US (occurrence: US)
  Receive Date: 20110823
  Receipt Date: 20120912
  Transmission Date: 20130627
  Serious: Yes (Hospitalization)
  Sender: FDA-Public Use
  Company Number: US-GLAXOSMITHKLINE-A0941898A

PATIENT
  Age: 67 Year
  Sex: Male

DRUGS (1)
  1. AVANDIA [Suspect]
     Indication: DIABETES MELLITUS
     Dosage: 4MG Twice per day
     Route: 048
     Dates: start: 200504, end: 200907

REACTIONS (4)
  - Myocardial infarction [Recovering/Resolving]
  - Cardiomyopathy [Unknown]
  - Pleural effusion [Unknown]
  - Coronary artery disease [Unknown]
